FAERS Safety Report 23771567 (Version 2)
Quarter: 2024Q3

REPORT INFORMATION
  Report Type: Report from Study
  Country: US (occurrence: US)
  Receive Date: 20240423
  Receipt Date: 20240704
  Transmission Date: 20241017
  Serious: No
  Sender: ACADIA PHARMACEUTICALS
  Company Number: US-ACADIA PHARMACEUTICALS INC.-ACA-2024-PIM-001620

PATIENT
  Sex: Male

DRUGS (1)
  1. NUPLAZID [Suspect]
     Active Substance: PIMAVANSERIN TARTRATE
     Indication: Parkinsonism
     Dosage: 34 MILLIGRAM, QD
     Route: 048
     Dates: start: 202311

REACTIONS (8)
  - Fatigue [Unknown]
  - Parkinson^s disease [Unknown]
  - Disorientation [Unknown]
  - Peripheral swelling [Recovering/Resolving]
  - Hallucinations, mixed [Unknown]
  - Hallucination [Unknown]
  - Drug ineffective [Unknown]
  - Off label use [Unknown]
